FAERS Safety Report 7212294-8 (Version None)
Quarter: 2011Q1

REPORT INFORMATION
  Report Type: 
  Country: None (occurrence: None)
  Receive Date: 20110106
  Receipt Date: 20101231
  Transmission Date: 20110831
  Serious: Yes (Death)
  Sender: FDA-Public Use
  Company Number: PHFR2010GB06146

PATIENT
  Sex: Female
  Weight: 80 kg

DRUGS (5)
  1. DULOXETIME HYDROCHLORIDE [Concomitant]
     Dosage: 90 MG, UNK
  2. SIMVASTATIN [Concomitant]
     Dosage: 40 MG, UNK
  3. OMEPRAZOLE [Concomitant]
     Dosage: 10 MG, UNK
  4. CLOZARIL [Suspect]
     Indication: SCHIZOPHRENIA
     Dosage: 425MG DAILY
     Dates: start: 19920121
  5. RISPERIDONE [Concomitant]
     Dosage: 1.5 MG, UNK

REACTIONS (8)
  - COUGH [None]
  - BRONCHITIS [None]
  - ANTIPSYCHOTIC DRUG LEVEL ABOVE THERAPEUTIC [None]
  - WHEEZING [None]
  - DYSPNOEA [None]
  - LUNG ABSCESS [None]
  - ASTHMA [None]
  - CIRCULATORY COLLAPSE [None]
